FAERS Safety Report 6029254-5 (Version None)
Quarter: 2009Q1

REPORT INFORMATION
  Report Type: 
  Country: None (occurrence: None)
  Receive Date: 20090106
  Receipt Date: 20081229
  Transmission Date: 20090719
  Serious: No
  Sender: FDA-Public Use
  Company Number: US-B.I. PHARMACEUTICALS,INC./RIDGEFIELD-2008-BP-19187BP

PATIENT
  Age: 54 Year
  Sex: Female

DRUGS (1)
  1. FLOMAX [Suspect]
     Indication: NEPHROLITHIASIS
     Dosage: .4MG
     Route: 048
     Dates: start: 20081213, end: 20081213

REACTIONS (1)
  - NAUSEA [None]
